FAERS Safety Report 5190378-6 (Version None)
Quarter: 2006Q4

REPORT INFORMATION
  Report Type: 
  Country: None (occurrence: None)
  Receive Date: 20061222
  Receipt Date: 20061006
  Transmission Date: 20070319
  Serious: Yes (Other)
  Sender: FDA-Public Use
  Company Number: US-AVENTIS-200618388US

PATIENT
  Sex: Female

DRUGS (12)
  1. KETEK [Suspect]
     Indication: ACUTE SINUSITIS
     Dates: start: 20060831, end: 20060904
  2. METFORMIN HCL [Concomitant]
     Dosage: DOSE: UNK
  3. NORVASC [Concomitant]
     Dosage: DOSE: UNK
  4. VALIDEX [Concomitant]
     Dosage: DOSE: UNK
  5. LEXAPRO [Concomitant]
     Dosage: DOSE: UNK
  6. TRAZODONE HCL [Concomitant]
     Dosage: DOSE: UNK
  7. ALLEGRA [Concomitant]
     Dosage: DOSE: UNK
  8. ADVAIR DISKUS 100/50 [Concomitant]
     Dosage: DOSE: UNK
  9. ALBUTEROL [Concomitant]
     Dosage: DOSE: UNK
  10. BYETTA [Concomitant]
     Dosage: DOSE: UNK
  11. FLONASE [Concomitant]
     Dosage: DOSE: UNK
  12. OMEPRAZOLE [Concomitant]
     Dosage: DOSE: UNK

REACTIONS (12)
  - ABDOMINAL PAIN [None]
  - ALANINE AMINOTRANSFERASE INCREASED [None]
  - ASPARTATE AMINOTRANSFERASE INCREASED [None]
  - BILIARY DILATATION [None]
  - DIABETES MELLITUS [None]
  - DIARRHOEA [None]
  - FATIGUE [None]
  - HEADACHE [None]
  - HEPATIC STEATOSIS [None]
  - NAUSEA [None]
  - POLYURIA [None]
  - PYREXIA [None]
